FAERS Safety Report 11873157 (Version 1)
Quarter: 2015Q4

REPORT INFORMATION
  Report Type: Report from Study
  Country: BR (occurrence: BR)
  Receive Date: 20151228
  Receipt Date: 20151228
  Transmission Date: 20160305
  Serious: Yes (Hospitalization, Other)
  Sender: FDA-Public Use
  Company Number: PHHY2015BR167843

PATIENT
  Age: 79 Year
  Sex: Female
  Weight: 70 kg

DRUGS (2)
  1. DIOVAN TRIPLE [Concomitant]
     Active Substance: AMLODIPINE BESYLATE\HYDROCHLOROTHIAZIDE\VALSARTAN
     Indication: PRODUCT USED FOR UNKNOWN INDICATION
     Dosage: UNK
     Route: 065
  2. DIOVAN HCT [Suspect]
     Active Substance: HYDROCHLOROTHIAZIDE\VALSARTAN
     Indication: BLOOD PRESSURE INCREASED
     Dosage: 1 DF, QD (MORNING)
     Route: 048
     Dates: start: 2011

REACTIONS (12)
  - Infrequent bowel movements [Unknown]
  - Femur fracture [Unknown]
  - Diabetes mellitus inadequate control [Unknown]
  - Hypotension [Unknown]
  - Lower limb fracture [Unknown]
  - Parkinson^s disease [Unknown]
  - Dementia Alzheimer^s type [Unknown]
  - Abdominal distension [Unknown]
  - Pelvic fracture [Unknown]
  - Gait disturbance [Unknown]
  - Blood glucose decreased [Unknown]
  - Blood glucose increased [Unknown]

NARRATIVE: CASE EVENT DATE: 20120712
